FAERS Safety Report 7926551 (Version 3)
Quarter: 2013Q1

REPORT INFORMATION
  Report Type: Spontaneous
  Country: US (occurrence: US)
  Receive Date: 20110502
  Receipt Date: 20130104
  Transmission Date: 20140127
  Serious: No
  Sender: FDA-Public Use
  Company Number: US-ASTRAZENECA-2010SE57618

PATIENT
  Age: 69 Year
  Sex: Female

DRUGS (3)
  1. NEXIUM [Suspect]
     Route: 048
  2. CRESTOR [Suspect]
     Route: 048
  3. PREDNISONE [Concomitant]

REACTIONS (4)
  - Arthropathy [Unknown]
  - Nasopharyngitis [Unknown]
  - Malaise [Unknown]
  - Insomnia [Unknown]
